FAERS Safety Report 21856032 (Version 3)
Quarter: 2023Q2

REPORT INFORMATION
  Report Type: Spontaneous
  Country: JP (occurrence: JP)
  Receive Date: 20230112
  Receipt Date: 20230517
  Transmission Date: 20230722
  Serious: Yes (Disabling, Other)
  Sender: FDA-Public Use
  Company Number: JP-BAYER-2023A001598

PATIENT
  Age: 7 Decade
  Sex: Male

DRUGS (1)
  1. VERICIGUAT HYDROCHLORIDE [Suspect]
     Active Substance: VERICIGUAT HYDROCHLORIDE
     Indication: Cardiac failure chronic
     Dosage: UNK
     Dates: start: 20220528, end: 20221208

REACTIONS (4)
  - Renal impairment [Recovered/Resolved with Sequelae]
  - Blood creatinine increased [Unknown]
  - Azotaemia [Recovering/Resolving]
  - Hypotension [Unknown]

NARRATIVE: CASE EVENT DATE: 20221128
